FAERS Safety Report 5211265-0 (Version None)
Quarter: 2006Q4

REPORT INFORMATION
  Report Type: 
  Country: None (occurrence: None)
  Receive Date: 20061114
  Receipt Date: 20060818
  Transmission Date: 20070319
  Serious: No
  Sender: FDA-Public Use
  Company Number: S06-USA-03406-01

PATIENT
  Age: 75 Year
  Sex: Female

DRUGS (5)
  1. NAMENDA [Suspect]
     Indication: CEREBROVASCULAR ACCIDENT
     Dosage: 5 MG QD PO
     Route: 048
     Dates: start: 20060812, end: 20060818
  2. NAMENDA [Suspect]
     Indication: TRANSIENT ISCHAEMIC ATTACK
     Dosage: 5 MG QD PO
     Route: 048
     Dates: start: 20060812, end: 20060818
  3. ARICEPT [Concomitant]
  4. RISPERDAL [Concomitant]
  5. REMERON (MIRTZAZAPINE) [Concomitant]

REACTIONS (1)
  - GAIT DISTURBANCE [None]
